FAERS Safety Report 18230399 (Version 1)
Quarter: 2020Q3

REPORT INFORMATION
  Report Type: Spontaneous
  Country: RO (occurrence: RO)
  Receive Date: 20200904
  Receipt Date: 20200904
  Transmission Date: 20201103
  Serious: Yes (Other)
  Sender: FDA-Public Use
  Company Number: RO-TEVA-2020-RO-1824597

PATIENT
  Age: 69 Year
  Sex: Male

DRUGS (3)
  1. EPIRUBICIN [Suspect]
     Active Substance: EPIRUBICIN
     Indication: TRANSCATHETER ARTERIAL CHEMOEMBOLISATION
     Dosage: EMBOLISATION WAS CARRIED USING 100 MICRONS MICROSPHERE BEADS LOADED WITH 100 MG OF EPIRUBICIN.
     Route: 065
  2. EPIRUBICIN [Suspect]
     Active Substance: EPIRUBICIN
     Indication: HEPATOCELLULAR CARCINOMA
  3. CEFOPERAZONE/SULBACTAM [Concomitant]
     Active Substance: CEFOPERAZONE\SULBACTAM
     Indication: ANTIBIOTIC PROPHYLAXIS
     Dosage: ADMINISTERED POST PROCEDURE
     Route: 065

REACTIONS (3)
  - Pancreatitis acute [Unknown]
  - Intra-abdominal fluid collection [Unknown]
  - Haemorrhagic necrotic pancreatitis [Unknown]
